FAERS Safety Report 9405964 (Version 1)
Quarter: 2013Q3

REPORT INFORMATION
  Report Type: Spontaneous
  Country: AR (occurrence: AR)
  Receive Date: 20130717
  Receipt Date: 20130717
  Transmission Date: 20140515
  Serious: Yes (Other)
  Sender: FDA-Public Use
  Company Number: AR-VIIV HEALTHCARE LIMITED-B0908290A

PATIENT
  Age: 28 Year
  Sex: Male

DRUGS (7)
  1. ZIDOVUDINE [Suspect]
     Indication: HIV INFECTION
     Route: 065
  2. LAMIVUDINE-HIV [Suspect]
     Indication: HIV INFECTION
     Route: 065
  3. ATAZANAVIR [Suspect]
     Indication: HIV INFECTION
  4. RITONAVIR [Suspect]
     Indication: HIV INFECTION
  5. COTRIMOXAZOL [Concomitant]
     Indication: PROPHYLAXIS
  6. FLUCONAZOL [Concomitant]
     Indication: PROPHYLAXIS
     Dosage: 200MG PER DAY
  7. AMPHOTERICIN B [Concomitant]

REACTIONS (9)
  - Progressive multifocal leukoencephalopathy [Recovered/Resolved]
  - Immune reconstitution inflammatory syndrome [Unknown]
  - Grand mal convulsion [Unknown]
  - Hemiparesis [Unknown]
  - Intracranial pressure increased [Unknown]
  - Demyelination [Unknown]
  - Brain oedema [Unknown]
  - Brain mass [Unknown]
  - Headache [Unknown]
